FAERS Safety Report 11461665 (Version 1)
Quarter: 2015Q3

REPORT INFORMATION
  Report Type: Spontaneous
  Country: US (occurrence: US)
  Receive Date: 20150831
  Receipt Date: 20150831
  Transmission Date: 20151125
  Serious: No
  Sender: FDA-Public Use
  Company Number: US-ELI_LILLY_AND_COMPANY-US200908004021

PATIENT
  Age: 83 Year
  Sex: Female

DRUGS (2)
  1. CYMBALTA [Suspect]
     Active Substance: DULOXETINE HYDROCHLORIDE
     Indication: NEUROPATHY PERIPHERAL
     Dosage: 20 MG, DAILY (1/D)
     Route: 048
     Dates: start: 20090817
  2. NEURONTIN /USA/ [Concomitant]
     Dosage: UNK, UNK

REACTIONS (10)
  - Pain in extremity [Not Recovered/Not Resolved]
  - Convulsions local [Recovered/Resolved]
  - Discomfort [Unknown]
  - Limb discomfort [Not Recovered/Not Resolved]
  - Burning sensation [Not Recovered/Not Resolved]
  - Hypopnoea [Unknown]
  - Chills [Not Recovered/Not Resolved]
  - Muscle twitching [Unknown]
  - Feeling hot [Not Recovered/Not Resolved]
  - Dry mouth [Not Recovered/Not Resolved]

NARRATIVE: CASE EVENT DATE: 20090817
